FAERS Safety Report 5202392-2 (Version None)
Quarter: 2006Q4

REPORT INFORMATION
  Report Type: 
  Country: None (occurrence: None)
  Receive Date: 20061012
  Receipt Date: 20060726
  Transmission Date: 20070319
  Serious: No
  Sender: FDA-Public Use
  Company Number: 2006S1000141

PATIENT
  Age: 40 Year
  Sex: Male

DRUGS (3)
  1. CUBICIN [Suspect]
     Indication: WOUND
     Dosage: 500 MG;Q24H;IV
     Route: 042
  2. INSULIN [Concomitant]
  3. ANTIHYPERTENSIVES [Concomitant]

REACTIONS (2)
  - BLOOD GLUCOSE INCREASED [None]
  - BLOOD POTASSIUM INCREASED [None]
